FAERS Safety Report 18170233 (Version 5)
Quarter: 2020Q4

REPORT INFORMATION
  Report Type: Spontaneous
  Country: US (occurrence: US)
  Receive Date: 20200819
  Receipt Date: 20201126
  Transmission Date: 20210113
  Serious: Yes (Hospitalization, Other)
  Sender: FDA-Public Use
  Company Number: US-PFIZER INC-2020319730

PATIENT
  Age: 27 Year
  Sex: Female
  Weight: 75.75 kg

DRUGS (1)
  1. PHENYTOIN SODIUM. [Suspect]
     Active Substance: PHENYTOIN SODIUM
     Indication: SEIZURE
     Dosage: UNK

REACTIONS (2)
  - Deafness [Unknown]
  - Drug ineffective [Unknown]

NARRATIVE: CASE EVENT DATE: 1980
